FAERS Safety Report 8514352-4 (Version None)
Quarter: 2012Q3

REPORT INFORMATION
  Report Type: 
  Country: None (occurrence: None)
  Receive Date: 20120717
  Receipt Date: 20120709
  Transmission Date: 20120928
  Serious: Yes (Hospitalization)
  Sender: FDA-Public Use
  Company Number: JP-JNJFOC-20120704754

PATIENT
  Age: 3 Decade
  Sex: Female

DRUGS (2)
  1. MICONAZOLE [Suspect]
     Route: 048
  2. MICONAZOLE [Suspect]
     Indication: GASTROINTESTINAL CANDIDIASIS
     Route: 048
     Dates: start: 20120615

REACTIONS (1)
  - DRUG ERUPTION [None]
